FAERS Safety Report 10366094 (Version 1)
Quarter: 2014Q3

REPORT INFORMATION
  Report Type: Spontaneous
  Country: CA (occurrence: None)
  Receive Date: 20140805
  Receipt Date: 20140805
  Transmission Date: 20150326
  Serious: Yes (Other)
  Sender: FDA-Public Use
  Company Number: None

PATIENT
  Age: 65 Year
  Sex: Female
  Weight: 55 kg

DRUGS (1)
  1. TERBINAFINE [Suspect]
     Active Substance: TERBINAFINE
     Indication: TINEA PEDIS
     Dosage: 1X1   ONCE DAILY  TAKEN BY MOUTH
     Route: 048
     Dates: start: 20140801, end: 20140804

REACTIONS (3)
  - Urine flow decreased [None]
  - Abdominal pain [None]
  - Insomnia [None]

NARRATIVE: CASE EVENT DATE: 20140803
